FAERS Safety Report 8474416-0 (Version None)
Quarter: 2012Q2

REPORT INFORMATION
  Report Type: 
  Country: None (occurrence: None)
  Receive Date: 20120628
  Receipt Date: 20120620
  Transmission Date: 20120825
  Serious: Yes (Other)
  Sender: FDA-Public Use
  Company Number: PHHY2012BR054212

PATIENT
  Age: 73 Year
  Sex: Female
  Weight: 73 kg

DRUGS (2)
  1. EUTHYROX [Concomitant]
     Dosage: 20 MG, UNK
  2. IMATINIB MESYLATE [Suspect]
     Indication: GASTROINTESTINAL STROMAL TUMOUR
     Dosage: 400 MG, UNK

REACTIONS (4)
  - DRUG INEFFECTIVE [None]
  - LUNG NEOPLASM [None]
  - NEOPLASM MALIGNANT [None]
  - NEOPLASM PROGRESSION [None]
